FAERS Safety Report 10141881 (Version 2)
Quarter: 2014Q2

REPORT INFORMATION
  Report Type: Report from Study
  Country: US (occurrence: US)
  Receive Date: 20140429
  Receipt Date: 20140522
  Transmission Date: 20141212
  Serious: Yes (Hospitalization)
  Sender: FDA-Public Use
  Company Number: PHHO2014US005939

PATIENT
  Age: 87 Year
  Sex: Male
  Weight: 84.5 kg

DRUGS (7)
  1. FUROSEMIDE TABLETS USP [Suspect]
     Indication: CARDIAC FAILURE CONGESTIVE
     Dosage: 40 MG, BID
     Route: 048
     Dates: start: 20110719, end: 20140418
  2. BLINDED NO TREATMENT RECEIVED [Suspect]
     Indication: CARDIAC FAILURE ACUTE
     Dosage: DOUBLE BLINDED
     Route: 042
     Dates: start: 20140411
  3. BLINDED PLACEBO [Suspect]
     Indication: CARDIAC FAILURE ACUTE
     Dosage: DOUBLE BLINDED
     Route: 042
     Dates: start: 20140411
  4. BLINDED RLX030 [Suspect]
     Indication: CARDIAC FAILURE ACUTE
     Dosage: DOUBLE BLINDED
     Route: 042
     Dates: start: 20140411
  5. ALDACTONE [Suspect]
     Indication: CARDIAC FAILURE CONGESTIVE
     Dosage: 12.5 MG, QD
     Route: 048
     Dates: start: 20140416, end: 20140418
  6. POTASSIUM CHLORIDE [Concomitant]
     Indication: ELECTROLYTE SUBSTITUTION THERAPY
     Dosage: 10 MEQ, BID
     Route: 048
     Dates: start: 20140414
  7. LISINOPRIL [Concomitant]
     Indication: CARDIAC FAILURE CONGESTIVE
     Dosage: 5 MG, QD
     Route: 048
     Dates: start: 20140414, end: 20140418

REACTIONS (1)
  - Pain in extremity [Recovered/Resolved]
